FAERS Safety Report 18871297 (Version 1)
Quarter: 2021Q1

REPORT INFORMATION
  Report Type: Spontaneous
  Country: US (occurrence: US)
  Receive Date: 20210210
  Receipt Date: 20210210
  Transmission Date: 20210420
  Serious: Yes (Hospitalization)
  Sender: FDA-Public Use
  Company Number: US-009507513-2102USA003798

PATIENT
  Age: 60 Year
  Sex: Male

DRUGS (21)
  1. LOVAZA [Suspect]
     Active Substance: OMEGA-3-ACID ETHYL ESTERS
     Indication: PRODUCT USED FOR UNKNOWN INDICATION
     Dosage: 2000 MG TWICE DAILY
     Route: 048
  2. REQUIP XL [Suspect]
     Active Substance: ROPINIROLE HYDROCHLORIDE
     Indication: RESTLESS LEGS SYNDROME
     Dosage: 4MG PER DAY
     Route: 048
  3. IMDUR [Concomitant]
     Active Substance: ISOSORBIDE MONONITRATE
  4. JANUVIA [Suspect]
     Active Substance: SITAGLIPTIN PHOSPHATE
  5. CARVEDILOL. [Concomitant]
     Active Substance: CARVEDILOL
  6. FUROSEMIDE. [Concomitant]
     Active Substance: FUROSEMIDE
  7. NEXIUM I.V. [Concomitant]
     Active Substance: ESOMEPRAZOLE SODIUM
  8. PRINIVIL [Concomitant]
     Active Substance: LISINOPRIL
  9. LIPITOR [Concomitant]
     Active Substance: ATORVASTATIN CALCIUM
  10. NITROSTAT [Concomitant]
     Active Substance: NITROGLYCERIN
  11. TRILIPIX [Concomitant]
     Active Substance: FENOFIBRIC ACID
  12. APIDRA [Concomitant]
     Active Substance: INSULIN GLULISINE
  13. LANTUS [Concomitant]
     Active Substance: INSULIN GLARGINE
  14. ASPIRIN. [Concomitant]
     Active Substance: ASPIRIN
  15. LEVOFLOXACIN. [Concomitant]
     Active Substance: LEVOFLOXACIN
  16. CODEINE [Concomitant]
     Active Substance: CODEINE
  17. TRIAMCINOLONE ACETONIDE. [Concomitant]
     Active Substance: TRIAMCINOLONE ACETONIDE
  18. PROVENTIL [Concomitant]
     Active Substance: ALBUTEROL
  19. OXYGEN. [Concomitant]
     Active Substance: OXYGEN
  20. NEURONTIN [Concomitant]
     Active Substance: GABAPENTIN
  21. PROAIR (PROCATEROL HYDROCHLORIDE) [Concomitant]
     Active Substance: PROCATEROL HYDROCHLORIDE

REACTIONS (5)
  - Haemoptysis [Not Recovered/Not Resolved]
  - Pneumonia [Not Recovered/Not Resolved]
  - Cough [Not Recovered/Not Resolved]
  - Thrombosis [Not Recovered/Not Resolved]
  - Lung squamous cell carcinoma stage III [Not Recovered/Not Resolved]

NARRATIVE: CASE EVENT DATE: 201404
